FAERS Safety Report 21015027 (Version 10)
Quarter: 2022Q4

REPORT INFORMATION
  Report Type: Report from Study
  Country: US (occurrence: US)
  Receive Date: 20220628
  Receipt Date: 20221110
  Transmission Date: 20230112
  Serious: Yes (Other)
  Sender: FDA-Public Use
  Company Number: US-NOVARTISTESTPH-NVSC2022US146418

PATIENT
  Sex: Female

DRUGS (1)
  1. ENTRESTO [Suspect]
     Active Substance: SACUBITRIL\VALSARTAN
     Indication: Product used for unknown indication
     Dosage: 1 DOSAGE FORM, BID
     Route: 048
     Dates: start: 20220612

REACTIONS (13)
  - Pneumothorax [Unknown]
  - Tremor [Unknown]
  - Nervousness [Unknown]
  - Procedural complication [Unknown]
  - Memory impairment [Unknown]
  - Weight fluctuation [Unknown]
  - Depression [Recovering/Resolving]
  - Dysphonia [Unknown]
  - Hypotension [Unknown]
  - Dizziness [Unknown]
  - COVID-19 [Unknown]
  - Taste disorder [Unknown]
  - Malaise [Unknown]
